FAERS Safety Report 4301543-1 (Version None)
Quarter: 2004Q1

REPORT INFORMATION
  Report Type: 
  Country: None (occurrence: None)
  Receive Date: 20040219
  Receipt Date: 20040213
  Transmission Date: 20041129
  Serious: Yes (Hospitalization)
  Sender: FDA-Public Use
  Company Number: US-JNJFOC-20040203284

PATIENT
  Age: 86 Year
  Sex: Female

DRUGS (1)
  1. SPORANOX [Suspect]
     Indication: HISTOPLASMOSIS
     Dosage: 100 MG, IN 1 DAY, ORAL
     Route: 048

REACTIONS (2)
  - HISTOPLASMOSIS [None]
  - PNEUMONIA ASPIRATION [None]
